FAERS Safety Report 9390364 (Version 2)
Quarter: 2013Q3

REPORT INFORMATION
  Report Type: Spontaneous
  Country: TR (occurrence: TR)
  Receive Date: 20130709
  Receipt Date: 20130715
  Transmission Date: 20140515
  Serious: Yes (Death, Hospitalization)
  Sender: FDA-Public Use
  Company Number: TR-BRISTOL-MYERS SQUIBB COMPANY-19071968

PATIENT
  Age: 62 Year
  Sex: Female

DRUGS (4)
  1. COUMADIN [Suspect]
     Indication: HEART VALVE REPLACEMENT
     Dosage: 1 DF: 1 X 1 ON MONDAYS, 1 X 1/2 ON OTHER DAYS
     Route: 048
     Dates: start: 20030313
  2. PANTOPRAZOLE [Concomitant]
     Dosage: TABS
     Route: 048
  3. LISINOPRIL [Concomitant]
     Route: 048
  4. HYDROCHLOROTHIAZIDE [Concomitant]
     Route: 048

REACTIONS (1)
  - Aneurysm ruptured [Fatal]
